FAERS Safety Report 6992265-7 (Version None)
Quarter: 2010Q3

REPORT INFORMATION
  Report Type: 
  Country: None (occurrence: None)
  Receive Date: 20100917
  Receipt Date: 20100906
  Transmission Date: 20110219
  Serious: Yes (Hospitalization)
  Sender: FDA-Public Use
  Company Number: AU-BAYER-201038348GPV

PATIENT
  Age: 73 Year
  Sex: Female
  Weight: 48 kg

DRUGS (11)
  1. RIVAROXABAN [Interacting]
     Indication: ACUTE CORONARY SYNDROME
     Dosage: DOSAGE FORM: TABLET
     Route: 048
     Dates: start: 20100731
  2. RIVAROXABAN [Interacting]
     Dosage: DOSAGE FORM: TABLET
     Route: 048
     Dates: start: 20100730, end: 20100730
  3. ASPIRIN [Suspect]
     Indication: ACUTE CORONARY SYNDROME
     Route: 048
     Dates: start: 20100807
  4. ASPIRIN [Interacting]
     Route: 048
     Dates: end: 20100804
  5. CLOPIDOGREL [Interacting]
     Indication: ACUTE CORONARY SYNDROME
     Route: 048
     Dates: end: 20100804
  6. CLOPIDOGREL [Interacting]
     Route: 048
     Dates: start: 20100807
  7. METOPROLOL TARTRATE [Concomitant]
  8. OMEPRAZOLE [Concomitant]
  9. NITROGLYCERIN [Concomitant]
     Route: 060
  10. ATORVASTATIN [Concomitant]
  11. PERINDOPRIL [Concomitant]

REACTIONS (1)
  - VASCULAR PSEUDOANEURYSM [None]
